FAERS Safety Report 17526212 (Version 1)
Quarter: 2020Q1

REPORT INFORMATION
  Report Type: Spontaneous
  Country: BE (occurrence: BE)
  Receive Date: 20200311
  Receipt Date: 20200311
  Transmission Date: 20200409
  Serious: Yes (Other)
  Sender: FDA-Public Use
  Company Number: BE-MYLANLABS-2020M1025216

PATIENT
  Age: 46 Year
  Sex: Female

DRUGS (2)
  1. TACROLIMUS. [Concomitant]
     Active Substance: TACROLIMUS
     Indication: IMMUNOSUPPRESSANT DRUG THERAPY
     Dosage: 7 MILLIGRAM, QD
  2. MYCOPHENOLATE MOFETIL. [Suspect]
     Active Substance: MYCOPHENOLATE MOFETIL
     Indication: IMMUNOSUPPRESSANT DRUG THERAPY
     Dosage: 500 MILLIGRAM, BID

REACTIONS (4)
  - Ulcer [Recovered/Resolved]
  - Ischaemia [Recovered/Resolved]
  - Enterocolitis [Recovered/Resolved]
  - Crohn^s disease [Recovered/Resolved]
